FAERS Safety Report 7730004-2 (Version None)
Quarter: 2011Q3

REPORT INFORMATION
  Report Type: 
  Country: None (occurrence: None)
  Receive Date: 20110906
  Receipt Date: 20110825
  Transmission Date: 20111222
  Serious: Yes (Disabling, Other)
  Sender: FDA-Public Use
  Company Number: PHHY2008GB19652

PATIENT
  Sex: Male

DRUGS (3)
  1. CLOZAPINE [Suspect]
     Dosage: 50 MG, UNK
  2. CLOZAPINE [Suspect]
     Indication: SCHIZOPHRENIA
     Dosage: 300 MG, QD
     Route: 048
     Dates: start: 19990101
  3. AMISULPRIDE [Concomitant]
     Dosage: 200 MG, QD

REACTIONS (8)
  - NASOPHARYNGITIS [None]
  - HYPOGONADISM [None]
  - OBESITY [None]
  - MALAISE [None]
  - HYPERPROLACTINAEMIA [None]
  - SALIVARY HYPERSECRETION [None]
  - OVERWEIGHT [None]
  - URINARY INCONTINENCE [None]
